FAERS Safety Report 8535473-6 (Version None)
Quarter: 2012Q3

REPORT INFORMATION
  Report Type: 
  Country: None (occurrence: None)
  Receive Date: 20120718
  Receipt Date: 20120718
  Transmission Date: 20120928
  Serious: No
  Sender: FDA-Public Use
  Company Number: None

PATIENT
  Sex: Male
  Weight: 151.8 kg

DRUGS (3)
  1. RITUXAN [Suspect]
     Indication: NON-HODGKIN'S LYMPHOMA
     Dosage: 680MG; Q4WKS; IV
     Route: 042
     Dates: start: 20120716
  2. TREANDA [Suspect]
     Indication: NON-HODGKIN'S LYMPHOMA
     Dosage: 182MG ; Q4WKS; IV
     Route: 042
     Dates: start: 20120716
  3. RITUXAN [Suspect]
     Indication: NON-HODGKIN'S LYMPHOMA
     Dosage: 680MG; Q4WKS; IV
     Route: 042
     Dates: start: 20120716

REACTIONS (4)
  - CHILLS [None]
  - BODY TEMPERATURE INCREASED [None]
  - FEELING COLD [None]
  - RESPIRATORY RATE INCREASED [None]
